FAERS Safety Report 10301668 (Version 1)
Quarter: 2014Q3

REPORT INFORMATION
  Report Type: Spontaneous
  Country: US (occurrence: None)
  Receive Date: 20140710
  Receipt Date: 20140710
  Transmission Date: 20150326
  Serious: No
  Sender: FDA-Public Use
  Company Number: None

PATIENT
  Age: 54 Year
  Sex: Female
  Weight: 63 kg

DRUGS (2)
  1. IMBRUVICA [Suspect]
     Active Substance: IBRUTINIB
     Indication: MANTLE CELL LYMPHOMA
     Route: 048
     Dates: start: 20140513
  2. ASPIRIN. [Concomitant]
     Active Substance: ASPIRIN

REACTIONS (9)
  - Rash maculo-papular [None]
  - Muscle spasms [None]
  - Chest discomfort [None]
  - Urticaria [None]
  - Diarrhoea [None]
  - Fatigue [None]
  - Decreased appetite [None]
  - Hypoaesthesia [None]
  - Contusion [None]

NARRATIVE: CASE EVENT DATE: 20140705
